FAERS Safety Report 8427671-7 (Version None)
Quarter: 2012Q2

REPORT INFORMATION
  Report Type: 
  Country: None (occurrence: None)
  Receive Date: 20120611
  Receipt Date: 20120531
  Transmission Date: 20120825
  Serious: Yes (Disabling, Other)
  Sender: FDA-Public Use
  Company Number: US-ACTELION-A-US2011-48332

PATIENT

DRUGS (4)
  1. COUMADIN [Concomitant]
  2. TRACLEER [Suspect]
     Indication: PULMONARY ARTERIAL HYPERTENSION
     Dosage: UNK
     Route: 048
     Dates: start: 20070307
  3. ADCIRCA [Concomitant]
  4. VIAGRA [Concomitant]

REACTIONS (6)
  - DEAFNESS [None]
  - TINNITUS [None]
  - FALL [None]
  - SLEEP APNOEA SYNDROME [None]
  - DIZZINESS [None]
  - NASOPHARYNGITIS [None]
